FAERS Safety Report 6983709-5 (Version None)
Quarter: 2010Q3

REPORT INFORMATION
  Report Type: 
  Country: None (occurrence: None)
  Receive Date: 20100914
  Receipt Date: 20080507
  Transmission Date: 20110219
  Serious: Yes (Death, Other)
  Sender: FDA-Public Use
  Company Number: US-WYE-H07163908

PATIENT
  Age: 58 Year
  Sex: Male
  Weight: 90.8 kg

DRUGS (5)
  1. ADVIL LIQUI-GELS [Suspect]
     Indication: ARTHRITIS
     Dosage: UNKNOWN
     Route: 048
  2. ARTHROTEC [Suspect]
     Indication: ARTHRITIS
     Dosage: UNKNOWN
     Route: 048
  3. ALLEGRA [Concomitant]
     Dosage: UNKNOWN
     Route: 048
  4. BEXTRA [Suspect]
     Indication: ARTHRITIS
     Route: 048
     Dates: end: 20050401
  5. NORVASC [Suspect]
     Indication: HYPERTENSION
     Route: 048

REACTIONS (6)
  - CORONARY ARTERY DISEASE [None]
  - CORONARY ARTERY OCCLUSION [None]
  - HYPONATRAEMIA [None]
  - IRRITABLE BOWEL SYNDROME [None]
  - MYOCARDIAL INFARCTION [None]
  - WHEEZING [None]
